FAERS Safety Report 6220853-4 (Version None)
Quarter: 2009Q2

REPORT INFORMATION
  Report Type: 
  Country: None (occurrence: None)
  Receive Date: 20090610
  Receipt Date: 20090604
  Transmission Date: 20091009
  Serious: Yes (Hospitalization)
  Sender: FDA-Public Use
  Company Number: US-KINGPHARMUSA00001-K200900686

PATIENT
  Sex: Female
  Weight: 45.351 kg

DRUGS (2)
  1. FLECTOR [Suspect]
     Dosage: 1 DF
     Route: 061
     Dates: start: 20090415, end: 20090415
  2. MORPHINE [Concomitant]
     Indication: ABDOMINAL PAIN
     Dosage: 15 MG, PRN
     Route: 048

REACTIONS (2)
  - FLANK PAIN [None]
  - RENAL FAILURE ACUTE [None]
